FAERS Safety Report 4530627-8 (Version None)
Quarter: 2004Q4

REPORT INFORMATION
  Report Type: 
  Country: None (occurrence: None)
  Receive Date: 20041216
  Receipt Date: 20041129
  Transmission Date: 20050328
  Serious: Yes (Hospitalization, Other)
  Sender: FDA-Public Use
  Company Number: FR_041105333

PATIENT
  Age: 58 Year
  Sex: Male

DRUGS (12)
  1. GEMZAR [Suspect]
     Indication: LUNG NEOPLASM MALIGNANT
     Dosage: 2.1 G/1 OTHER
     Route: 050
     Dates: start: 20041008
  2. CISPLATIN [Concomitant]
  3. SOLU-MEDROL [Concomitant]
  4. BISOPROLOL FUMARATE [Concomitant]
  5. ONDANSETRON HYDROCHLORIDE [Concomitant]
  6. IKOREL (NICORANDIL) [Concomitant]
  7. INNOHEP [Concomitant]
  8. KARDEGIC (LYSINE ASPIRIN) [Concomitant]
  9. MOPRAL (OMEPRAZOLE RATIOPHARM) [Concomitant]
  10. ZOLPIDEM TARTRATE [Concomitant]
  11. XANAX (ALPRAZOLAM DUM) [Concomitant]
  12. ZOCOR (SIMVASTATIN RATIOPHARM) [Concomitant]

REACTIONS (2)
  - ATRIAL FIBRILLATION [None]
  - CHEST PAIN [None]
